FAERS Safety Report 5245226-2 (Version None)
Quarter: 2007Q1

REPORT INFORMATION
  Report Type: 
  Country: None (occurrence: None)
  Receive Date: 20070223
  Receipt Date: 20070213
  Transmission Date: 20070707
  Serious: Yes (Other)
  Sender: FDA-Public Use
  Company Number: JP-ROCHE-482984

PATIENT
  Age: 67 Year
  Sex: Female

DRUGS (7)
  1. RIVOTRIL [Suspect]
     Indication: AUTONOMIC NERVOUS SYSTEM IMBALANCE
     Route: 048
     Dates: start: 20060419
  2. CABASER [Suspect]
     Indication: DRUG USE FOR UNKNOWN INDICATION
     Route: 048
  3. ALMARL [Suspect]
     Indication: DRUG USE FOR UNKNOWN INDICATION
     Route: 048
  4. MENESIT [Concomitant]
     Route: 048
  5. DEPAS [Concomitant]
     Route: 048
  6. POLLAKISU [Concomitant]
     Route: 048
  7. FOSAMAX [Concomitant]
     Dosage: DRUG REPORTED AS FOSAMAC (ALENDRONATE SODIUM HYDRATE).
     Route: 048

REACTIONS (1)
  - HYPOGLYCAEMIA [None]
